FAERS Safety Report 5241066-9 (Version None)
Quarter: 2007Q1

REPORT INFORMATION
  Report Type: 
  Country: None (occurrence: None)
  Receive Date: 20070214
  Receipt Date: 20070214
  Transmission Date: 20070707
  Serious: Yes (Other)
  Sender: FDA-Public Use
  Company Number: None

PATIENT
  Age: 57 Year
  Sex: Male
  Weight: 83.9154 kg

DRUGS (1)
  1. LIPITOR [Suspect]
     Dosage: 20MG  1 PER DAY  PO
     Route: 048
     Dates: start: 20040101, end: 20061112

REACTIONS (2)
  - AMNESIA [None]
  - DIZZINESS [None]
